FAERS Safety Report 4620129-2 (Version None)
Quarter: 2005Q1

REPORT INFORMATION
  Report Type: 
  Country: None (occurrence: None)
  Receive Date: 20050323
  Receipt Date: 20050323
  Transmission Date: 20050727
  Serious: No
  Sender: FDA-Public Use
  Company Number: None

PATIENT
  Sex: Female
  Weight: 88 kg

DRUGS (3)
  1. CISPLATIN [Suspect]
     Dosage: 60 MG/M2 IV DAY 1
     Route: 042
     Dates: start: 20041227
  2. MANNITOL [Suspect]
     Dosage: 12.5 GM IV OVER 2 HOURS DAY 1
     Route: 042
  3. ETOPOSIDE [Suspect]
     Dosage: 120 MG/M2 IV OVER 1 HOUR DAY 1, DAY 2 AND 3 240 MG/M2 PO AS A SINGLE DOSE PER DAY, TAKEN IN THE MORN
     Route: 042

REACTIONS (6)
  - BACK PAIN [None]
  - BURNING SENSATION [None]
  - CHEST PAIN [None]
  - DEHYDRATION [None]
  - HAEMOGLOBIN DECREASED [None]
  - NEUTROPHIL COUNT DECREASED [None]
